FAERS Safety Report 24081625 (Version 2)
Quarter: 2024Q3

REPORT INFORMATION
  Report Type: Spontaneous
  Country: US (occurrence: None)
  Receive Date: 20240712
  Receipt Date: 20240815
  Transmission Date: 20241017
  Serious: No
  Sender: ASTRAZENECA
  Company Number: 2024A150404

PATIENT

DRUGS (1)
  1. FASENRA [Suspect]
     Active Substance: BENRALIZUMAB
     Dosage: UNKNOWN
     Route: 058

REACTIONS (11)
  - Depression [Unknown]
  - Arthralgia [Unknown]
  - Lower respiratory tract infection [Unknown]
  - Pain [Unknown]
  - Fatigue [Unknown]
  - Sinus disorder [Unknown]
  - Ear disorder [Unknown]
  - Anosmia [Unknown]
  - Ageusia [Unknown]
  - Sinus polyp [Unknown]
  - Tinnitus [Unknown]
